FAERS Safety Report 8398956-8 (Version None)
Quarter: 2012Q2

REPORT INFORMATION
  Report Type: 
  Country: None (occurrence: None)
  Receive Date: 20120531
  Receipt Date: 20110506
  Transmission Date: 20120825
  Serious: No
  Sender: FDA-Public Use
  Company Number: US-NOVEN-11US002418

PATIENT

DRUGS (4)
  1. ALPAZINE ER [Concomitant]
     Indication: DEPRESSION
     Dosage: 340 MG, UNK
     Route: 048
  2. XANAX [Concomitant]
     Indication: ANXIETY
     Dosage: .5 MG, BID
     Route: 048
  3. DAYTRANA [Suspect]
     Indication: ATTENTION DEFICIT/HYPERACTIVITY DISORDER
     Dosage: 30 MG, QD
     Route: 062
     Dates: start: 20110505
  4. RITALIN [Concomitant]
     Indication: ATTENTION DEFICIT/HYPERACTIVITY DISORDER
     Dosage: UNK
     Route: 048

REACTIONS (3)
  - OFF LABEL USE [None]
  - PRODUCT QUALITY ISSUE [None]
  - NO ADVERSE EVENT [None]
